FAERS Safety Report 6271564-0 (Version None)
Quarter: 2009Q3

REPORT INFORMATION
  Report Type: 
  Country: None (occurrence: None)
  Receive Date: 20090715
  Receipt Date: 20090715
  Transmission Date: 20100115
  Serious: Yes (Hospitalization)
  Sender: FDA-Public Use
  Company Number: None

PATIENT
  Age: 55 Year
  Sex: Male

DRUGS (2)
  1. CISPLATIN [Suspect]
     Dosage: 95 MG OTHER IV
     Route: 042
     Dates: start: 20090406, end: 20090518
  2. ETOPOSIDE [Suspect]
     Dosage: 100 MG OTHER IV
     Route: 042
     Dates: start: 20090406, end: 20090515

REACTIONS (3)
  - ANAEMIA [None]
  - FEBRILE NEUTROPENIA [None]
  - LEUKOPENIA [None]
